FAERS Safety Report 8592903 (Version 3)
Quarter: 2013Q2

REPORT INFORMATION
  Report Type: Spontaneous
  Country: US (occurrence: US)
  Receive Date: 20120604
  Receipt Date: 20130619
  Transmission Date: 20140414
  Serious: Yes (Hospitalization, Disabling)
  Sender: FDA-Public Use
  Company Number: US-ASTRAZENECA-2012SE34831

PATIENT
  Age: 45 Year
  Sex: Female
  Weight: 74.4 kg

DRUGS (25)
  1. NEXIUM [Suspect]
     Indication: GASTROOESOPHAGEAL REFLUX DISEASE
     Route: 048
     Dates: start: 2009, end: 2011
  2. NEXIUM [Suspect]
     Indication: DYSPEPSIA
     Route: 048
     Dates: start: 2009, end: 2011
  3. NEXIUM [Suspect]
     Indication: GASTROOESOPHAGEAL REFLUX DISEASE
     Route: 048
     Dates: start: 20090411
  4. NEXIUM [Suspect]
     Indication: DYSPEPSIA
     Route: 048
     Dates: start: 20090411
  5. PRILOSEC [Suspect]
     Route: 048
  6. ELAVIL [Concomitant]
  7. LIPITOR [Concomitant]
  8. KLONOPIN [Concomitant]
  9. LORCET PLUS [Concomitant]
     Dosage: 7.5/650 TWO TIMES DAILY
  10. SYNTHROID [Concomitant]
  11. MOBIC [Concomitant]
  12. TOPROL [Concomitant]
  13. PHENERGAN [Concomitant]
  14. VITAMIN D 2 [Concomitant]
     Dosage: ONCE WEEKLY
  15. CALCIUM 600 PLUS D [Concomitant]
  16. CITALOPRAM [Concomitant]
  17. DICLOFENAC SODIUM [Concomitant]
  18. TAMOXIFEN [Concomitant]
  19. SINGULAIR [Concomitant]
  20. ZETIA [Concomitant]
  21. PROMETHAZINE [Concomitant]
  22. PHENTERMINE [Concomitant]
  23. DARVOCET-N 100 [Concomitant]
  24. TAMOFEN [Concomitant]
  25. ZOLOFT HCL [Concomitant]

REACTIONS (18)
  - Cardiac disorder [Unknown]
  - Mental disorder [Unknown]
  - Physical disability [Unknown]
  - Bone density decreased [Unknown]
  - Osteoporosis [Unknown]
  - Arthritis [Unknown]
  - Arthropathy [Unknown]
  - Breast disorder [Unknown]
  - Bone pain [Unknown]
  - Cerebrovascular accident [Unknown]
  - Chronic obstructive pulmonary disease [Unknown]
  - Clavicle fracture [Unknown]
  - Fall [Unknown]
  - Foot fracture [Unknown]
  - Nervous system disorder [Unknown]
  - Pain [Unknown]
  - Vitamin D deficiency [Unknown]
  - Depression [Unknown]
